FAERS Safety Report 7470834-8 (Version None)
Quarter: 2011Q2

REPORT INFORMATION
  Report Type: 
  Country: None (occurrence: None)
  Receive Date: 20110502
  Receipt Date: 20110421
  Transmission Date: 20111010
  Serious: Yes (Disabling, Other)
  Sender: FDA-Public Use
  Company Number: DIB2011002

PATIENT
  Age: 38 Year
  Sex: Male

DRUGS (1)
  1. PHENOXYBENZAMINE [Suspect]
     Indication: PHAEOCHROMOCYTOMA

REACTIONS (2)
  - OPTIC ISCHAEMIC NEUROPATHY [None]
  - FACE OEDEMA [None]
